FAERS Safety Report 19141000 (Version 2)
Quarter: 2021Q2

REPORT INFORMATION
  Report Type: Spontaneous
  Country: JP (occurrence: JP)
  Receive Date: 20210415
  Receipt Date: 20210507
  Transmission Date: 20210717
  Serious: Yes (Hospitalization)
  Sender: FDA-Public Use
  Company Number: JP-ALLERGAN-2115321US

PATIENT
  Sex: Female

DRUGS (3)
  1. GATIFLO [Suspect]
     Active Substance: GATIFLOXACIN
     Indication: CORNEAL EROSION
     Dosage: UNK UNK, QID
     Route: 047
  2. PIMARICIN [Suspect]
     Active Substance: NATAMYCIN
     Indication: CORNEAL OPACITY
     Dosage: UNK, QID
     Route: 047
  3. GATIFLO [Suspect]
     Active Substance: GATIFLOXACIN
     Indication: ACANTHAMOEBA KERATITIS

REACTIONS (4)
  - Off label use [Unknown]
  - Corneal perforation [Unknown]
  - Corneal opacity [Unknown]
  - Corneal erosion [Unknown]
